FAERS Safety Report 13662549 (Version 1)
Quarter: 2017Q2

REPORT INFORMATION
  Report Type: Spontaneous
  Country: US (occurrence: US)
  Receive Date: 20170618
  Receipt Date: 20170618
  Transmission Date: 20170830
  Serious: Yes (Hospitalization, Other)
  Sender: FDA-Public Use
  Company Number: US-009507513-1706USA005701

PATIENT
  Age: 62 Year
  Sex: Female
  Weight: 65.85 kg

DRUGS (3)
  1. DEXAMETHASONE. [Suspect]
     Active Substance: DEXAMETHASONE
     Dosage: 4 MG, UNK
     Route: 048
  2. DECADRON [Suspect]
     Active Substance: DEXAMETHASONE
     Dosage: UNK
     Dates: start: 2015
  3. IBRANCE [Suspect]
     Active Substance: PALBOCICLIB
     Indication: BREAST CANCER METASTATIC
     Dosage: 100 MG, QD, 21 DAYS ON, 7 DAYS OFF
     Route: 048
     Dates: start: 201701

REACTIONS (16)
  - Pyrexia [Unknown]
  - Asthenia [Unknown]
  - Hypoacusis [Unknown]
  - Back pain [Unknown]
  - Rib fracture [Unknown]
  - Fatigue [Unknown]
  - Arthralgia [Unknown]
  - Deep vein thrombosis [Unknown]
  - Swelling face [Unknown]
  - Musculoskeletal pain [Unknown]
  - Diarrhoea [Unknown]
  - Dehydration [Unknown]
  - Chest pain [Unknown]
  - Limb discomfort [Unknown]
  - Pain in extremity [Unknown]
  - Peripheral swelling [Unknown]

NARRATIVE: CASE EVENT DATE: 2015
